FAERS Safety Report 24427891 (Version 2)
Quarter: 2024Q4

REPORT INFORMATION
  Report Type: Spontaneous
  Country: BR (occurrence: BR)
  Receive Date: 20241011
  Receipt Date: 20241023
  Transmission Date: 20250114
  Serious: Yes (Other)
  Sender: BAYER HEALTHCARE PHARMACEUTICALS INC.
  Company Number: BR-BAYER-2024A144311

PATIENT
  Age: 36 Year
  Sex: Female

DRUGS (2)
  1. MIRENA [Suspect]
     Active Substance: LEVONORGESTREL
     Indication: Contraception
     Dosage: 20?G/DAY
     Route: 015
     Dates: start: 20220426
  2. MIRENA [Suspect]
     Active Substance: LEVONORGESTREL
     Indication: Endometriosis

REACTIONS (8)
  - Pregnancy with contraceptive device [None]
  - Haemorrhage in pregnancy [Not Recovered/Not Resolved]
  - Haemorrhage urinary tract [Recovered/Resolved with Sequelae]
  - Drug ineffective [None]
  - Abdominal pain lower [Not Recovered/Not Resolved]
  - Headache [Recovering/Resolving]
  - Pain in extremity [Recovering/Resolving]
  - Amenorrhoea [Not Recovered/Not Resolved]

NARRATIVE: CASE EVENT DATE: 20220426
